FAERS Safety Report 15494058 (Version 1)
Quarter: 2018Q4

REPORT INFORMATION
  Report Type: Spontaneous
  Country: FR (occurrence: FR)
  Receive Date: 20181012
  Receipt Date: 20181012
  Transmission Date: 20190205
  Serious: Yes (Other)
  Sender: FDA-Public Use
  Company Number: FR-SA-2018SA278621

PATIENT
  Age: 10 Year
  Sex: Male
  Weight: 38.1 kg

DRUGS (3)
  1. FLUCORTAC [Interacting]
     Active Substance: FLUDROCORTISONE ACETATE
     Indication: ADRENOGENITAL SYNDROME
     Route: 048
     Dates: start: 201601
  2. FLUDROCORTISONE [Interacting]
     Active Substance: FLUDROCORTISONE
     Indication: ADRENOGENITAL SYNDROME
     Route: 048
     Dates: start: 201601, end: 20180604
  3. HYDROCORTISONE ROUSSEL [Suspect]
     Active Substance: HYDROCORTISONE
     Indication: ADRENOGENITAL SYNDROME
     Route: 048
     Dates: start: 201601

REACTIONS (3)
  - Polyuria [Recovered/Resolved]
  - Hypokalaemia [Recovered/Resolved]
  - Growth retardation [Unknown]

NARRATIVE: CASE EVENT DATE: 201801
